FAERS Safety Report 13242303 (Version 5)
Quarter: 2017Q2

REPORT INFORMATION
  Report Type: Report from Study
  Country: GB (occurrence: GB)
  Receive Date: 20170217
  Receipt Date: 20170607
  Transmission Date: 20170830
  Serious: Yes (Other)
  Sender: FDA-Public Use
  Company Number: GB-BRISTOL-MYERS SQUIBB COMPANY-BMS-2017-011926

PATIENT
  Age: 29 Year
  Sex: Female

DRUGS (5)
  1. LEFLUNOMIDE. [Concomitant]
     Active Substance: LEFLUNOMIDE
     Indication: RHEUMATOID ARTHRITIS
     Dosage: 20 MG, UNK
     Route: 048
     Dates: start: 2014
  2. NAPROXEN. [Concomitant]
     Active Substance: NAPROXEN
     Indication: PRODUCT USED FOR UNKNOWN INDICATION
     Dosage: UNK UNK, PRN
     Route: 065
     Dates: start: 2017
  3. FOLIC ACID. [Concomitant]
     Active Substance: FOLIC ACID
     Indication: RHEUMATOID ARTHRITIS
     Dosage: UNK, PRN
     Route: 048
     Dates: start: 2017
  4. ABATACEPT [Suspect]
     Active Substance: ABATACEPT
     Indication: JUVENILE IDIOPATHIC ARTHRITIS
     Dosage: 125 MG, QWK
     Route: 058
     Dates: start: 20150323
  5. ABATACEPT [Suspect]
     Active Substance: ABATACEPT
     Indication: PRODUCT USED FOR UNKNOWN INDICATION
     Dosage: 125 MG, QWK
     Route: 058
     Dates: start: 201504

REACTIONS (4)
  - Incorrect product storage [Unknown]
  - Laparoscopic surgery [Unknown]
  - Musculoskeletal stiffness [Unknown]
  - Movement disorder [Unknown]

NARRATIVE: CASE EVENT DATE: 201702
